FAERS Safety Report 16343727 (Version 2)
Quarter: 2019Q2

REPORT INFORMATION
  Report Type: Spontaneous
  Country: US (occurrence: US)
  Receive Date: 20190522
  Receipt Date: 20190603
  Transmission Date: 20190711
  Serious: No
  Sender: FDA-Public Use
  Company Number: US-PFIZER INC-2019213809

PATIENT
  Sex: Female

DRUGS (5)
  1. ERYTHROMYCIN. [Suspect]
     Active Substance: ERYTHROMYCIN
     Dosage: UNK
  2. COBALT [Suspect]
     Active Substance: COBALT
     Dosage: UNK
  3. KEFLEX [Suspect]
     Active Substance: CEPHALEXIN
     Dosage: UNK
  4. ASPIRIN. [Suspect]
     Active Substance: ASPIRIN
     Dosage: UNK
  5. CORTISOL [Suspect]
     Active Substance: HYDROCORTISONE
     Dosage: UNK

REACTIONS (1)
  - Drug hypersensitivity [Unknown]
